FAERS Safety Report 7633284-7 (Version None)
Quarter: 2011Q3

REPORT INFORMATION
  Report Type: 
  Country: None (occurrence: None)
  Receive Date: 20110718
  Receipt Date: 20110627
  Transmission Date: 20111222
  Serious: No
  Sender: FDA-Public Use
  Company Number: US-1185292

PATIENT
  Age: 81 Year
  Sex: Female
  Weight: 66.6788 kg

DRUGS (5)
  1. COUMADIN [Concomitant]
  2. SYNTHROID [Concomitant]
  3. ANTIHYPERTENSIVES [Concomitant]
  4. AMLODIPINE [Concomitant]
  5. TRAVATAN Z [Suspect]
     Indication: NORMAL TENSION GLAUCOMA
     Dosage: 1 GTT QD, OU, OPHTHALMIC
     Route: 047
     Dates: start: 20100610

REACTIONS (4)
  - SURGICAL FAILURE [None]
  - TRICHIASIS [None]
  - CONDITION AGGRAVATED [None]
  - SKIN HYPERPIGMENTATION [None]
